FAERS Safety Report 25831974 (Version 2)
Quarter: 2025Q3

REPORT INFORMATION
  Report Type: Spontaneous
  Country: CN (occurrence: CN)
  Receive Date: 20250922
  Receipt Date: 20250925
  Transmission Date: 20251020
  Serious: Yes (Hospitalization, Other)
  Sender: DAIICHI
  Company Number: CN-DSJP-DS-2025-165611-CN

PATIENT
  Age: 37 Year
  Sex: Female
  Weight: 53 kg

DRUGS (2)
  1. TRASTUZUMAB DERUXTECAN [Suspect]
     Active Substance: TRASTUZUMAB DERUXTECAN
     Indication: Neoplasm
     Route: 041
     Dates: start: 20250729, end: 20250729
  2. TRASTUZUMAB DERUXTECAN [Suspect]
     Active Substance: TRASTUZUMAB DERUXTECAN
     Dosage: 240 MG, QD
     Route: 041
     Dates: start: 20250819, end: 20250819

REACTIONS (1)
  - Myelosuppression [Recovering/Resolving]

NARRATIVE: CASE EVENT DATE: 20250828
